FAERS Safety Report 7224258-9 (Version None)
Quarter: 2011Q1

REPORT INFORMATION
  Report Type: 
  Country: None (occurrence: None)
  Receive Date: 20110104
  Receipt Date: 20101220
  Transmission Date: 20110831
  Serious: Yes (Hospitalization)
  Sender: FDA-Public Use
  Company Number: 2010-4417

PATIENT
  Age: 70 Year
  Sex: Female
  Weight: 62.5 kg

DRUGS (2)
  1. DYSPORT [Suspect]
     Indication: OFF LABEL USE
     Dosage: (SINGLE CYCLE)
     Dates: start: 20100604, end: 20100604
  2. DYSPORT [Suspect]
     Indication: SKIN COSMETIC PROCEDURE
     Dosage: (SINGLE CYCLE)
     Dates: start: 20100604, end: 20100604

REACTIONS (8)
  - MUSCLE DISORDER [None]
  - ERYTHEMA [None]
  - MILLER FISHER SYNDROME [None]
  - DIPLOPIA [None]
  - URTICARIA [None]
  - DRY MOUTH [None]
  - PRURITUS [None]
  - ABASIA [None]
